FAERS Safety Report 6450121-7 (Version None)
Quarter: 2009Q4

REPORT INFORMATION
  Report Type: 
  Country: None (occurrence: None)
  Receive Date: 20091123
  Receipt Date: 20091112
  Transmission Date: 20100525
  Serious: Yes (Hospitalization)
  Sender: FDA-Public Use
  Company Number: US-MYLANLABS-2009S1018733

PATIENT
  Age: 53 Year
  Sex: Male
  Weight: 90.72 kg

DRUGS (12)
  1. METOPROLOL TARTRATE [Suspect]
     Indication: BLOOD PRESSURE INCREASED
     Route: 048
     Dates: start: 20030101, end: 20090701
  2. METOPROLOL TARTRATE [Suspect]
     Route: 048
     Dates: start: 20090701, end: 20091001
  3. METOPROLOL TARTRATE [Suspect]
     Indication: PALPITATIONS
     Route: 048
     Dates: start: 20090701, end: 20091001
  4. METOPROLOL TARTRATE [Suspect]
     Route: 048
     Dates: start: 20091005
  5. METOPROLOL TARTRATE [Suspect]
     Route: 048
     Dates: start: 20091005
  6. LISINOPRIL [Suspect]
     Indication: BLOOD PRESSURE INCREASED
     Route: 048
     Dates: end: 20090922
  7. LISINOPRIL [Suspect]
     Route: 048
     Dates: start: 20090925
  8. LISINOPRIL [Suspect]
     Route: 048
     Dates: start: 20090922, end: 20090925
  9. ASPIRIN [Concomitant]
  10. GARLIC [Concomitant]
  11. FISH OIL [Concomitant]
  12. DAILY MULTIVITAMIN [Concomitant]

REACTIONS (18)
  - BLOOD PRESSURE DECREASED [None]
  - BLOOD PRESSURE INCREASED [None]
  - CHEST DISCOMFORT [None]
  - CHEST PAIN [None]
  - CONFUSIONAL STATE [None]
  - DRUG EFFECT INCREASED [None]
  - DRUG INEFFECTIVE [None]
  - DYSPNOEA [None]
  - EAR DISCOMFORT [None]
  - HEADACHE [None]
  - HEART RATE DECREASED [None]
  - HEART RATE INCREASED [None]
  - HOT FLUSH [None]
  - HYPERHIDROSIS [None]
  - PALPITATIONS [None]
  - PANIC ATTACK [None]
  - SENSATION OF BLOOD FLOW [None]
  - TREMOR [None]
